FAERS Safety Report 15558204 (Version 11)
Quarter: 2019Q2

REPORT INFORMATION
  Report Type: Report from Study
  Country: CO (occurrence: CO)
  Receive Date: 20181027
  Receipt Date: 20190521
  Transmission Date: 20190711
  Serious: Yes (Other)
  Sender: FDA-Public Use
  Company Number: CO-ACTELION-A-CH2018-180572

PATIENT
  Age: 58 Year
  Sex: Female
  Weight: 78 kg

DRUGS (5)
  1. OPSUMIT [Suspect]
     Active Substance: MACITENTAN
     Dosage: 10 MG, QD
     Route: 048
     Dates: start: 20171025, end: 20190122
  2. OPSUMIT [Suspect]
     Active Substance: MACITENTAN
     Dosage: 10 MG, QD
     Route: 048
     Dates: start: 20190124
  3. BOSENTAN. [Suspect]
     Active Substance: BOSENTAN
     Indication: PULMONARY ARTERIAL HYPERTENSION
     Dosage: UNK
     Route: 048
     Dates: start: 20181121, end: 20181122
  4. OPSUMIT [Suspect]
     Active Substance: MACITENTAN
     Dosage: 10 MG, QD
     Route: 048
     Dates: start: 20170920
  5. OPSUMIT [Suspect]
     Active Substance: MACITENTAN
     Indication: PULMONARY ARTERIAL HYPERTENSION
     Dosage: 10 MG, BID
     Route: 048

REACTIONS (38)
  - Cyanosis [Not Recovered/Not Resolved]
  - Depression [Not Recovered/Not Resolved]
  - Musculoskeletal pain [Not Recovered/Not Resolved]
  - Gait disturbance [Not Recovered/Not Resolved]
  - Pyrexia [Recovered/Resolved]
  - Memory impairment [Not Recovered/Not Resolved]
  - Prescribed overdose [Recovering/Resolving]
  - Mouth haemorrhage [Recovering/Resolving]
  - Fatigue [Not Recovered/Not Resolved]
  - Back pain [Not Recovered/Not Resolved]
  - Cardiomegaly [Not Recovered/Not Resolved]
  - Head discomfort [Recovered/Resolved]
  - Nausea [Recovering/Resolving]
  - Aggression [Not Recovered/Not Resolved]
  - Abdominal pain upper [Not Recovered/Not Resolved]
  - Epistaxis [Recovered/Resolved]
  - Nasopharyngitis [Recovered/Resolved]
  - Somnolence [Not Recovered/Not Resolved]
  - Psychiatric symptom [Not Recovered/Not Resolved]
  - Pain [Not Recovered/Not Resolved]
  - Oxygen saturation decreased [Not Recovered/Not Resolved]
  - Feeling abnormal [Recovered/Resolved]
  - Emotional distress [Unknown]
  - Mood altered [Not Recovered/Not Resolved]
  - Abdominal distension [Not Recovered/Not Resolved]
  - Headache [Not Recovered/Not Resolved]
  - Product administration error [Unknown]
  - Dizziness [Recovering/Resolving]
  - Product supply issue [Recovered/Resolved]
  - Pain in extremity [Not Recovered/Not Resolved]
  - Frustration tolerance decreased [Not Recovered/Not Resolved]
  - Dyspnoea [Recovered/Resolved]
  - Malaise [Not Recovered/Not Resolved]
  - Crying [Not Recovered/Not Resolved]
  - PO2 decreased [Not Recovered/Not Resolved]
  - Depressed mood [Not Recovered/Not Resolved]
  - Chest pain [Not Recovered/Not Resolved]
  - Sleep disorder [Not Recovered/Not Resolved]

NARRATIVE: CASE EVENT DATE: 2018
